FAERS Safety Report 22267461 (Version 1)
Quarter: 2023Q2

REPORT INFORMATION
  Report Type: Spontaneous
  Country: US (occurrence: US)
  Receive Date: 20230429
  Receipt Date: 20230429
  Transmission Date: 20230722
  Serious: No
  Sender: FDA-Public Use
  Company Number: US-UNITED THERAPEUTICS-UNT-2023-006122

PATIENT
  Age: 12 Year
  Sex: Female

DRUGS (2)
  1. REMODULIN [Suspect]
     Active Substance: TREPROSTINIL
     Indication: Pulmonary arterial hypertension
     Dosage: 0.0998 ?G/KG, CONTINUING (AT 0.040 ML/HOUR PUMP RATE)
     Route: 058
  2. REMODULIN [Suspect]
     Active Substance: TREPROSTINIL
     Dosage: UNK, CONTINUING
     Route: 058
     Dates: start: 202203

REACTIONS (7)
  - Device malfunction [Recovered/Resolved]
  - Infusion site erythema [Recovering/Resolving]
  - Device programming error [Recovered/Resolved]
  - Device power source issue [Recovered/Resolved]
  - Device failure [Recovered/Resolved]
  - Infusion site scab [Unknown]
  - Infusion site infection [Unknown]

NARRATIVE: CASE EVENT DATE: 20230316
